FAERS Safety Report 11223880 (Version 1)
Quarter: 2015Q2

REPORT INFORMATION
  Report Type: Spontaneous
  Country: GB (occurrence: GB)
  Receive Date: 20150629
  Receipt Date: 20150629
  Transmission Date: 20150821
  Serious: Yes (Hospitalization)
  Sender: FDA-Public Use
  Company Number: GB-ACCORD-031704

PATIENT
  Age: 68 Year
  Sex: Female

DRUGS (8)
  1. LEFLUNOMIDE. [Suspect]
     Active Substance: LEFLUNOMIDE
     Indication: RHEUMATOID ARTHRITIS
     Dosage: HAD ALSO BEEN ON HOLD BUT RE-STARTED A COUPLE OF DAYS AGO
  2. PARACETAMOL [Concomitant]
     Active Substance: ACETAMINOPHEN
     Dosage: UP TO FOUR TIMES DAILY (QDS)
  3. FOLIC ACID. [Concomitant]
     Active Substance: FOLIC ACID
     Dosage: RE-STARTED LAST WEEK - TOOK ON THURSDAY
  4. CETIRIZINE [Concomitant]
     Active Substance: CETIRIZINE HYDROCHLORIDE
  5. METHOTREXATE [Suspect]
     Active Substance: METHOTREXATE
     Indication: PRODUCT USED FOR UNKNOWN INDICATION
     Dosage: WEEKLY ON A  FRIDAY. THIS HAD BEEN ON HOLD BUT WAS RESTARTED 2 WEEKS AGO
  6. MST CONTINUS [Concomitant]
     Active Substance: MORPHINE SULFATE
  7. BISOPROLOL [Concomitant]
     Active Substance: BISOPROLOL
  8. DOCUSATE/DOCUSATE CALCIUM/DOCUSATE POTASSIUM/DOCUSATE SODIUM [Concomitant]

REACTIONS (4)
  - Urosepsis [Recovered/Resolved]
  - Malaise [Recovered/Resolved]
  - Chills [Recovered/Resolved]
  - Pancytopenia [Recovered/Resolved]

NARRATIVE: CASE EVENT DATE: 20141130
